FAERS Safety Report 25914090 (Version 3)
Quarter: 2025Q4

REPORT INFORMATION
  Report Type: Spontaneous
  Country: CA (occurrence: CA)
  Receive Date: 20251013
  Receipt Date: 20251231
  Transmission Date: 20260117
  Serious: Yes (Other)
  Sender: PFIZER
  Company Number: CA-PFIZER INC-202500200844

PATIENT
  Age: 68 Year
  Sex: Male

DRUGS (3)
  1. RUXIENCE [Suspect]
     Active Substance: RITUXIMAB-PVVR
     Indication: Dermatomyositis
     Dosage: 1 G, DAY 1 AND 15
     Route: 042
     Dates: start: 20250114, end: 20250129
  2. RUXIENCE [Suspect]
     Active Substance: RITUXIMAB-PVVR
     Indication: Antisynthetase syndrome
  3. RUXIENCE [Suspect]
     Active Substance: RITUXIMAB-PVVR
     Indication: Interstitial lung disease

REACTIONS (5)
  - Pulmonary artery dilatation [Unknown]
  - Interstitial lung disease [Not Recovered/Not Resolved]
  - Dermatomyositis [Not Recovered/Not Resolved]
  - Hiatus hernia [Unknown]
  - Blood creatine phosphokinase increased [Unknown]
